FAERS Safety Report 12540712 (Version 2)
Quarter: 2016Q3

REPORT INFORMATION
  Report Type: Spontaneous
  Country: US (occurrence: US)
  Receive Date: 20160708
  Receipt Date: 20160719
  Transmission Date: 20161109
  Serious: No
  Sender: FDA-Public Use
  Company Number: US-TEVA-654268USA

PATIENT
  Age: 63 Year
  Sex: Female

DRUGS (3)
  1. ZECUITY [Suspect]
     Active Substance: SUMATRIPTAN SUCCINATE
     Route: 062
     Dates: start: 20160405, end: 20160405
  2. ZECUITY [Suspect]
     Active Substance: SUMATRIPTAN SUCCINATE
     Route: 062
     Dates: start: 201604, end: 201604
  3. ZECUITY [Suspect]
     Active Substance: SUMATRIPTAN SUCCINATE
     Route: 062
     Dates: start: 20160419, end: 20160419

REACTIONS (9)
  - Device battery issue [Unknown]
  - Product adhesion issue [Unknown]
  - Application site swelling [Recovered/Resolved]
  - Migraine [Not Recovered/Not Resolved]
  - Product use issue [Unknown]
  - Product leakage [Unknown]
  - Product physical issue [Unknown]
  - Application site erythema [Recovered/Resolved]
  - Application site pruritus [Recovered/Resolved]

NARRATIVE: CASE EVENT DATE: 201604
